FAERS Safety Report 13386381 (Version 1)
Quarter: 2017Q1

REPORT INFORMATION
  Report Type: Spontaneous
  Country: US (occurrence: US)
  Receive Date: 20170330
  Receipt Date: 20170330
  Transmission Date: 20170429
  Serious: No
  Sender: FDA-Public Use
  Company Number: US-MYLANLABS-2016M1055644

PATIENT
  Sex: Female
  Weight: 56.25 kg

DRUGS (1)
  1. AMLODIPINE [Suspect]
     Active Substance: AMLODIPINE BESYLATE
     Indication: HYPERTENSION
     Dosage: 5 MG, QD
     Route: 048
     Dates: start: 2016, end: 20161121

REACTIONS (16)
  - Dizziness [Not Recovered/Not Resolved]
  - Chills [Not Recovered/Not Resolved]
  - Abdominal pain [Not Recovered/Not Resolved]
  - Dyspepsia [Not Recovered/Not Resolved]
  - Constipation [Not Recovered/Not Resolved]
  - Flatulence [Not Recovered/Not Resolved]
  - Confusional state [Not Recovered/Not Resolved]
  - Pollakiuria [Not Recovered/Not Resolved]
  - Tremor [Not Recovered/Not Resolved]
  - Feeling cold [Not Recovered/Not Resolved]
  - Insomnia [Not Recovered/Not Resolved]
  - Paraesthesia [Not Recovered/Not Resolved]
  - Throat irritation [Not Recovered/Not Resolved]
  - Asthenia [Not Recovered/Not Resolved]
  - Chest pain [Not Recovered/Not Resolved]
  - Amnesia [Not Recovered/Not Resolved]
